FAERS Safety Report 6974766-0 (Version None)
Quarter: 2010Q3

REPORT INFORMATION
  Report Type: 
  Country: None (occurrence: None)
  Receive Date: 20100909
  Receipt Date: 20081208
  Transmission Date: 20110219
  Serious: No
  Sender: FDA-Public Use
  Company Number: US-WYE-H07137408

PATIENT
  Sex: Male
  Weight: 120.31 kg

DRUGS (3)
  1. PRISTIQ [Suspect]
     Indication: DEPRESSION
     Route: 048
     Dates: start: 20081001
  2. TRICOR [Concomitant]
  3. BENICAR [Concomitant]

REACTIONS (1)
  - ARTHRALGIA [None]
